FAERS Safety Report 4527052-2 (Version None)
Quarter: 2004Q4

REPORT INFORMATION
  Report Type: 
  Country: None (occurrence: None)
  Receive Date: 20041214
  Receipt Date: 20041201
  Transmission Date: 20050328
  Serious: Yes (Hospitalization, Other)
  Sender: FDA-Public Use
  Company Number: GBWYE255303DEC04

PATIENT
  Age: 15 Year
  Sex: Female

DRUGS (2)
  1. ENBREL [Suspect]
     Indication: JUVENILE ARTHRITIS
     Dosage: 10.4MG
     Route: 058
     Dates: start: 20000901
  2. ATENOLOL [Concomitant]
     Indication: HYPERTENSION
     Dosage: 15MG

REACTIONS (7)
  - ANAEMIA [None]
  - ARTHRITIS [None]
  - CONDITION AGGRAVATED [None]
  - HISTIOCYTOSIS HAEMATOPHAGIC [None]
  - PYREXIA [None]
  - RENAL IMPAIRMENT [None]
  - THROMBOCYTOPENIA [None]
